FAERS Safety Report 22285795 (Version 1)
Quarter: 2023Q2

REPORT INFORMATION
  Report Type: Spontaneous
  Country: US (occurrence: US)
  Receive Date: 20230504
  Receipt Date: 20230504
  Transmission Date: 20230722
  Serious: No
  Sender: FDA-Public Use
  Company Number: US-BAUSCHBL-2023BNL003781

PATIENT
  Age: 54 Year
  Sex: Female
  Weight: 60.382 kg

DRUGS (5)
  1. OPCON-A [Suspect]
     Active Substance: NAPHAZOLINE HYDROCHLORIDE\PHENIRAMINE MALEATE
     Indication: Dry eye
     Dosage: STARTED 3 WEEKS AGO, AS NEEDED
     Route: 047
     Dates: start: 202304, end: 202304
  2. OPCON-A [Suspect]
     Active Substance: NAPHAZOLINE HYDROCHLORIDE\PHENIRAMINE MALEATE
     Indication: Hypersensitivity
     Dosage: LAST WEDNESDAY, ON 26/APR/2023 SHE USED AGAIN
     Route: 047
     Dates: start: 20230426, end: 20230426
  3. RESTASIS [Concomitant]
     Active Substance: CYCLOSPORINE
     Indication: Product used for unknown indication
  4. LUMIFY [Concomitant]
     Active Substance: BRIMONIDINE TARTRATE
     Indication: Product used for unknown indication
  5. RINVOQ [Concomitant]
     Active Substance: UPADACITINIB
     Indication: Product used for unknown indication

REACTIONS (3)
  - Acne [Unknown]
  - Blister [Unknown]
  - Instillation site infection [Unknown]

NARRATIVE: CASE EVENT DATE: 20230401
